FAERS Safety Report 24005055 (Version 1)
Quarter: 2024Q2

REPORT INFORMATION
  Report Type: Spontaneous
  Country: US (occurrence: US)
  Receive Date: 20240624
  Receipt Date: 20240624
  Transmission Date: 20240716
  Serious: No
  Sender: FDA-Public Use
  Company Number: US-PERRIGO-24US001579

PATIENT
  Age: 3 Year
  Sex: Female
  Weight: 18.141 kg

DRUGS (1)
  1. CHILDRENS CETIRIZINE HYDROCHLORIDE ALLERGY [Suspect]
     Active Substance: CETIRIZINE HYDROCHLORIDE
     Indication: Accidental exposure to product by child
     Dosage: 5-10ML, ONCE
     Route: 048
     Dates: start: 20240212, end: 20240212

REACTIONS (2)
  - Accidental exposure to product by child [Unknown]
  - Expired product administered [Unknown]

NARRATIVE: CASE EVENT DATE: 20240212
